FAERS Safety Report 8366703-1 (Version None)
Quarter: 2012Q2

REPORT INFORMATION
  Report Type: 
  Country: None (occurrence: None)
  Receive Date: 20120517
  Receipt Date: 20120514
  Transmission Date: 20120825
  Serious: Yes (Hospitalization, Other)
  Sender: FDA-Public Use
  Company Number: BR-PFIZER INC-2012117645

PATIENT
  Age: 69 Year
  Sex: Male
  Weight: 90 kg

DRUGS (3)
  1. LIPITOR [Concomitant]
     Dosage: ONE TABLET DAILY
     Dates: start: 20120514
  2. CARDURA [Suspect]
     Dosage: ONE TABLET, ONCE DAILY
     Route: 048
     Dates: start: 20010201
  3. VIAGRA [Concomitant]
     Dosage: UNK
     Dates: start: 20080922

REACTIONS (2)
  - MYOCARDIAL INFARCTION [None]
  - FEELING ABNORMAL [None]
